FAERS Safety Report 7517419-2 (Version None)
Quarter: 2011Q2

REPORT INFORMATION
  Report Type: 
  Country: None (occurrence: None)
  Receive Date: 20110601
  Receipt Date: 20110523
  Transmission Date: 20111010
  Serious: Yes (Other)
  Sender: FDA-Public Use
  Company Number: US-JNJFOC-20110510553

PATIENT
  Sex: Female

DRUGS (5)
  1. DILAUDID [Suspect]
     Indication: PAIN
     Route: 048
  2. DURAGESIC-100 [Suspect]
     Indication: PAIN
     Dosage: AS NEEDED
     Route: 062
  3. DURAGESIC-100 [Suspect]
     Route: 062
  4. FENTANYL-100 [Suspect]
     Indication: PAIN
     Route: 062
  5. DURAGESIC-100 [Suspect]
     Route: 062

REACTIONS (11)
  - HYPERCHOLESTEROLAEMIA [None]
  - MALAISE [None]
  - SOMNOLENCE [None]
  - ABDOMINAL DISCOMFORT [None]
  - LETHARGY [None]
  - RENAL DISORDER [None]
  - DRUG PRESCRIBING ERROR [None]
  - PRODUCT PACKAGING QUANTITY ISSUE [None]
  - FEELING ABNORMAL [None]
  - DIABETES MELLITUS [None]
  - PAIN [None]
